FAERS Safety Report 20483607 (Version 1)
Quarter: 2022Q1

REPORT INFORMATION
  Report Type: Other
  Country: AR (occurrence: None)
  Receive Date: 20220217
  Receipt Date: 20220217
  Transmission Date: 20220423
  Serious: Yes (Hospitalization)
  Sender: FDA-Public Use
  Company Number: AR-ROCHE-3020928

PATIENT
  Age: 24 Year
  Sex: Male
  Weight: 80 kg

DRUGS (7)
  1. OCREVUS [Suspect]
     Active Substance: OCRELIZUMAB
     Indication: Relapsing-remitting multiple sclerosis
     Route: 042
     Dates: start: 202106
  2. OCREVUS [Suspect]
     Active Substance: OCRELIZUMAB
     Route: 042
     Dates: start: 202107
  3. OCREVUS [Suspect]
     Active Substance: OCRELIZUMAB
     Route: 042
     Dates: start: 202201
  4. OCREVUS [Suspect]
     Active Substance: OCRELIZUMAB
     Route: 042
     Dates: start: 20220204
  5. NATALIZUMAB [Concomitant]
     Active Substance: NATALIZUMAB
     Indication: Relapsing-remitting multiple sclerosis
  6. BENADRYL (ARGENTINA) [Concomitant]
     Indication: Premedication
  7. METHYLPREDNISOLONE [Concomitant]
     Active Substance: METHYLPREDNISOLONE
     Indication: Premedication

REACTIONS (5)
  - Rash [Recovered/Resolved]
  - Lip pruritus [Recovering/Resolving]
  - Lip oedema [Recovering/Resolving]
  - Laryngeal oedema [Recovering/Resolving]
  - Hypersensitivity [Recovering/Resolving]

NARRATIVE: CASE EVENT DATE: 20220204
